FAERS Safety Report 24392574 (Version 1)
Quarter: 2024Q4

REPORT INFORMATION
  Report Type: Spontaneous
  Country: US (occurrence: US)
  Receive Date: 20241003
  Receipt Date: 20241003
  Transmission Date: 20250115
  Serious: Yes (Hospitalization, Other)
  Sender: SPECGX
  Company Number: US-SPECGX-T202401971

PATIENT
  Age: 35 Year
  Sex: Female

DRUGS (1)
  1. METHADONE [Suspect]
     Active Substance: METHADONE HYDROCHLORIDE
     Indication: Drug abuse
     Dosage: 100 MILLIGRAM, QD
     Route: 065

REACTIONS (8)
  - Asthmatic crisis [Recovering/Resolving]
  - Pneumonia [Unknown]
  - Streptococcal infection [Unknown]
  - Influenza [Unknown]
  - Staphylococcal infection [Unknown]
  - Mechanical ventilation [Unknown]
  - Endotracheal intubation [Unknown]
  - Exposure during pregnancy [Unknown]
